FAERS Safety Report 21540195 (Version 5)
Quarter: 2023Q2

REPORT INFORMATION
  Report Type: Other
  Country: CA (occurrence: None)
  Receive Date: 20221102
  Receipt Date: 20230507
  Transmission Date: 20230722
  Serious: No
  Sender: FDA-Public Use
  Company Number: CA-ROCHE-3210570

PATIENT
  Age: 22 Year
  Sex: Female

DRUGS (6)
  1. OCREVUS [Suspect]
     Active Substance: OCRELIZUMAB
     Indication: Relapsing-remitting multiple sclerosis
     Dosage: THEN 600 MG EVERY 6 MONTH
     Route: 042
     Dates: start: 20201008
  2. GABAPENTIN [Concomitant]
     Active Substance: GABAPENTIN
  3. TOPIRAMATE [Concomitant]
     Active Substance: TOPIRAMATE
  4. DULOXETINE [Concomitant]
     Active Substance: DULOXETINE
  5. TRAZODONE [Concomitant]
     Active Substance: TRAZODONE HYDROCHLORIDE
  6. MODAFINIL [Concomitant]
     Active Substance: MODAFINIL

REACTIONS (5)
  - Weight increased [Unknown]
  - Petechiae [Unknown]
  - Oral herpes [Recovering/Resolving]
  - Stress [Unknown]
  - Infusion related reaction [Recovering/Resolving]

NARRATIVE: CASE EVENT DATE: 20201008
